FAERS Safety Report 25351074 (Version 1)
Quarter: 2025Q2

REPORT INFORMATION
  Report Type: Spontaneous
  Country: ES (occurrence: ES)
  Receive Date: 20250523
  Receipt Date: 20250523
  Transmission Date: 20250716
  Serious: Yes (Hospitalization)
  Sender: ACCORD
  Company Number: None

PATIENT
  Age: 6 Year
  Sex: Female
  Weight: 18 kg

DRUGS (3)
  1. METHOTREXATE [Suspect]
     Active Substance: METHOTREXATE
     Indication: Product used for unknown indication
     Dates: start: 20250404
  2. CYTARABINE [Suspect]
     Active Substance: CYTARABINE
     Indication: Product used for unknown indication
     Dates: start: 20250404
  3. VINCRISTINE [Suspect]
     Active Substance: VINCRISTINE
     Indication: B-cell type acute leukaemia
     Dates: start: 20241204

REACTIONS (3)
  - Hyponatraemia [Recovering/Resolving]
  - Pancytopenia [Recovering/Resolving]
  - Maxillofacial pain [Recovering/Resolving]

NARRATIVE: CASE EVENT DATE: 20250404
